FAERS Safety Report 11662079 (Version 1)
Quarter: 2015Q4

REPORT INFORMATION
  Report Type: Spontaneous
  Country: HU (occurrence: HU)
  Receive Date: 20151026
  Receipt Date: 20151026
  Transmission Date: 20160304
  Serious: Yes (Other)
  Sender: FDA-Public Use
  Company Number: HU-MYLANLABS-2015M1036171

PATIENT

DRUGS (1)
  1. VALPROATE [Suspect]
     Active Substance: VALPROATE SODIUM
     Indication: PRODUCT USED FOR UNKNOWN INDICATION
     Dosage: 30 MG/KG, UNK
     Route: 065

REACTIONS (3)
  - Blood alkaline phosphatase increased [Recovered/Resolved]
  - Bone marrow failure [Recovered/Resolved]
  - Hyperammonaemia [Recovered/Resolved]
